FAERS Safety Report 13483322 (Version 2)
Quarter: 2017Q3

REPORT INFORMATION
  Report Type: Report from Study
  Country: DE (occurrence: DE)
  Receive Date: 20170426
  Receipt Date: 20170720
  Transmission Date: 20171127
  Serious: Yes (Hospitalization)
  Sender: FDA-Public Use
  Company Number: DE-BIOGEN-2017BI00390688

PATIENT
  Age: 49 Year
  Sex: Male
  Weight: 84 kg

DRUGS (17)
  1. APYDAN EXTENT [Concomitant]
     Active Substance: OXCARBAZEPINE
     Indication: MUSCLE TWITCHING
     Route: 048
     Dates: start: 20151103, end: 20161101
  2. SALBUTAMOL [Concomitant]
     Active Substance: ALBUTEROL
     Indication: CHRONIC OBSTRUCTIVE PULMONARY DISEASE
     Dosage: TWO INSPIRATIONS FOR ONE DAY
     Route: 048
     Dates: start: 20161111
  3. GILENYA [Concomitant]
     Active Substance: FINGOLIMOD HYDROCHLORIDE
     Indication: MULTIPLE SCLEROSIS
     Route: 048
     Dates: start: 20120228, end: 20141001
  4. EFFENTORA [Concomitant]
     Active Substance: FENTANYL CITRATE
     Route: 002
     Dates: start: 20161101
  5. ZOPICLON [Concomitant]
     Active Substance: ZOPICLONE
     Dosage: 7.5 QD
     Route: 065
  6. VELMETIA [Concomitant]
     Active Substance: METFORMIN\SITAGLIPTIN
     Indication: DIABETES MELLITUS
     Dosage: DOSE: 50/1000
     Route: 048
     Dates: start: 20140521
  7. PALEXIA [Concomitant]
     Active Substance: TAPENTADOL HYDROCHLORIDE
     Indication: RESTLESS LEGS SYNDROME
     Route: 048
     Dates: start: 20160202, end: 20161101
  8. PREGABADOR [Concomitant]
     Indication: SENSORY DISTURBANCE
     Route: 048
     Dates: start: 20150407
  9. GILENYA [Concomitant]
     Active Substance: FINGOLIMOD HYDROCHLORIDE
     Route: 048
     Dates: start: 20161205
  10. GILENYA [Concomitant]
     Active Substance: FINGOLIMOD HYDROCHLORIDE
     Dosage: 0.5 QD
     Route: 065
  11. VALSARTAN. [Concomitant]
     Active Substance: VALSARTAN
     Indication: HYPERTENSION
     Route: 048
     Dates: start: 20150409
  12. FENTANYL. [Concomitant]
     Active Substance: FENTANYL
     Indication: RESTLESS LEGS SYNDROME
     Dosage: DOSE: 200 U/H
     Route: 062
     Dates: start: 20161101
  13. VALSARTAN. [Concomitant]
     Active Substance: VALSARTAN
     Dosage: 1.5 TABLETS QD
     Route: 065
  14. ZOPICLON [Concomitant]
     Active Substance: ZOPICLONE
     Indication: RESTLESS LEGS SYNDROME
     Route: 048
     Dates: start: 20091103
  15. TYSABRI [Suspect]
     Active Substance: NATALIZUMAB
     Indication: MULTIPLE SCLEROSIS
     Route: 042
     Dates: start: 20070205, end: 20091101
  16. TYSABRI [Suspect]
     Active Substance: NATALIZUMAB
     Route: 042
     Dates: start: 20141208, end: 20161205
  17. EFFENTORA [Concomitant]
     Active Substance: FENTANYL CITRATE
     Indication: RESTLESS LEGS SYNDROME
     Route: 002
     Dates: start: 20120627, end: 20161101

REACTIONS (3)
  - Benign prostatic hyperplasia [Recovered/Resolved]
  - Nephrolithiasis [Recovered/Resolved]
  - Ureterolithiasis [Recovered/Resolved]

NARRATIVE: CASE EVENT DATE: 20170118
